FAERS Safety Report 25285472 (Version 3)
Quarter: 2025Q3

REPORT INFORMATION
  Report Type: Report from Study
  Country: US (occurrence: US)
  Receive Date: 20250509
  Receipt Date: 20250724
  Transmission Date: 20251020
  Serious: No
  Sender: SUNOVION
  Company Number: US-SMPA-2025SPA004546AA

PATIENT

DRUGS (5)
  1. ORGOVYX [Suspect]
     Active Substance: RELUGOLIX
     Indication: Prostate cancer
     Dosage: 360 MG, SINGLE
     Route: 048
     Dates: start: 20250222, end: 20250222
  2. ORGOVYX [Suspect]
     Active Substance: RELUGOLIX
     Dosage: 120 MG, QD
     Route: 048
     Dates: start: 20250223
  3. ALFUZOSIN HYDROCHLORIDE [Concomitant]
     Active Substance: ALFUZOSIN HYDROCHLORIDE
     Route: 065
  4. FINASTERIDE [Concomitant]
     Active Substance: FINASTERIDE
     Route: 065
  5. XTANDI [Concomitant]
     Active Substance: ENZALUTAMIDE
     Indication: Prostate cancer
     Dosage: 160 MG, QD

REACTIONS (6)
  - Muscular weakness [Unknown]
  - Rash [Unknown]
  - Night sweats [Recovering/Resolving]
  - Asthenia [Unknown]
  - Pain in extremity [Unknown]
  - Fatigue [Unknown]
